FAERS Safety Report 9408449 (Version 1)
Quarter: 2013Q3

REPORT INFORMATION
  Report Type: Spontaneous
  Country: GB (occurrence: None)
  Receive Date: 20130716
  Receipt Date: 20130716
  Transmission Date: 20140515
  Serious: Yes (Other)
  Sender: FDA-Public Use
  Company Number: GB-20130034

PATIENT
  Age: 36 Year
  Sex: Female

DRUGS (1)
  1. DOTAREM [Suspect]
     Indication: NUCLEAR MAGNETIC RESONANCE IMAGING
     Route: 042
     Dates: start: 20130315, end: 20130315

REACTIONS (3)
  - Urticaria [None]
  - Conjunctival hyperaemia [None]
  - Conjunctival hyperaemia [None]
